FAERS Safety Report 9502619 (Version 1)
Quarter: 2013Q1

REPORT INFORMATION
  Report Type: Spontaneous
  Country: US (occurrence: None)
  Receive Date: 20130107
  Receipt Date: 20130107
  Transmission Date: 20140127
  Serious: No
  Sender: FDA-Public Use
  Company Number: PHEH2012US021086

PATIENT
  Age: 48 Year
  Sex: Male

DRUGS (1)
  1. GILENYA [Suspect]
     Indication: MULTIPLE SCLEROSIS
     Route: 048
     Dates: start: 201208

REACTIONS (6)
  - Head discomfort [None]
  - Photosensitivity reaction [None]
  - Dysarthria [None]
  - Mental status changes [None]
  - Headache [None]
  - Dyspnoea [None]
